FAERS Safety Report 7889662 (Version 8)
Quarter: 2016Q3

REPORT INFORMATION
  Report Type: Spontaneous
  Country: US (occurrence: US)
  Receive Date: 20110407
  Receipt Date: 20160914
  Transmission Date: 20161109
  Serious: Yes (Disabling, Other)
  Sender: FDA-Public Use
  Company Number: US-009507513-1103USA03950

PATIENT
  Sex: Female
  Weight: 69.4 kg

DRUGS (5)
  1. CALCIUM (UNSPECIFIED) [Concomitant]
     Active Substance: CALCIUM
     Indication: PRODUCT USED FOR UNKNOWN INDICATION
     Dosage: UNK, QD
     Route: 065
  2. FOSAMAX PLUS D [Suspect]
     Active Substance: ALENDRONATE SODIUM\CHOLECALCIFEROL
     Indication: OSTEOPOROSIS
     Dosage: 70MG/2800IU,QW
     Route: 048
     Dates: start: 200702
  3. FOSAMAX [Suspect]
     Active Substance: ALENDRONATE SODIUM
     Indication: OSTEOPOROSIS
     Dosage: UNK
     Route: 048
     Dates: start: 2000, end: 201003
  4. CENTRUM SILVER [Concomitant]
     Active Substance: MINERALS\VITAMINS
     Indication: PRODUCT USED FOR UNKNOWN INDICATION
     Route: 065
  5. FOSAMAX [Suspect]
     Active Substance: ALENDRONATE SODIUM
     Dosage: UNK UNK, QW
     Route: 048
     Dates: start: 20080109

REACTIONS (44)
  - Sarcoma [Unknown]
  - Femur fracture [Unknown]
  - Arthritis [Unknown]
  - Hypercalcaemia [Unknown]
  - Carpal tunnel syndrome [Unknown]
  - Osteoarthritis [Unknown]
  - Tooth disorder [Unknown]
  - Actinic keratosis [Unknown]
  - Vomiting [Unknown]
  - Fall [Unknown]
  - Blood creatinine increased [Unknown]
  - Haemorrhoid operation [Recovered/Resolved]
  - Basal cell carcinoma [Unknown]
  - Stress fracture [Recovered/Resolved]
  - Cataract [Unknown]
  - Osteopenia [Unknown]
  - Papule [Unknown]
  - Femur fracture [Unknown]
  - Nocturia [Unknown]
  - Bone disorder [Unknown]
  - Cataract [Unknown]
  - Pain in extremity [Unknown]
  - Back pain [Recovering/Resolving]
  - Neoplasm malignant [Recovered/Resolved]
  - Squamous cell carcinoma [Unknown]
  - Retinal detachment [Recovered/Resolved]
  - Adverse drug reaction [Unknown]
  - Tooth disorder [Not Recovered/Not Resolved]
  - Sialoadenitis [Recovering/Resolving]
  - Extrasystoles [Unknown]
  - Nausea [Unknown]
  - Pain in extremity [Unknown]
  - Muscle rupture [Unknown]
  - Squamous cell carcinoma of skin [Recovered/Resolved]
  - Cardiac murmur [Unknown]
  - Bronchitis [Not Recovered/Not Resolved]
  - Bone disorder [Unknown]
  - Tendonitis [Unknown]
  - Breast pain [Unknown]
  - Constipation [Not Recovered/Not Resolved]
  - Hyperlipidaemia [Unknown]
  - Femur fracture [Recovering/Resolving]
  - Inappropriate schedule of drug administration [Unknown]
  - Tooth disorder [Unknown]

NARRATIVE: CASE EVENT DATE: 20030407
